FAERS Safety Report 6154573-1 (Version None)
Quarter: 2009Q2

REPORT INFORMATION
  Report Type: 
  Country: None (occurrence: None)
  Receive Date: 20090414
  Receipt Date: 20090410
  Transmission Date: 20091009
  Serious: Yes (Disabling)
  Sender: FDA-Public Use
  Company Number: US-B.I. PHARMACEUTICALS,INC./RIDGEFIELD-2009-BP-03369BP

PATIENT
  Sex: Female

DRUGS (1)
  1. SPIRIVA [Suspect]
     Indication: EMPHYSEMA
     Dates: start: 20060101, end: 20070101

REACTIONS (5)
  - BLINDNESS [None]
  - CONDITION AGGRAVATED [None]
  - DRY MOUTH [None]
  - LOSS OF CONSCIOUSNESS [None]
  - MACULAR DEGENERATION [None]
